FAERS Safety Report 8438878-7 (Version None)
Quarter: 2012Q2

REPORT INFORMATION
  Report Type: 
  Country: None (occurrence: None)
  Receive Date: 20120615
  Receipt Date: 20120605
  Transmission Date: 20120825
  Serious: Yes (Other)
  Sender: FDA-Public Use
  Company Number: CA-JNJFOC-20120603033

PATIENT
  Sex: Female
  Weight: 56 kg

DRUGS (3)
  1. FENTANYL [Concomitant]
     Route: 062
  2. SOLU-CORTEF [Concomitant]
     Indication: PREMEDICATION
     Route: 042
  3. REMICADE [Suspect]
     Indication: CROHN'S DISEASE
     Route: 042
     Dates: start: 20070101

REACTIONS (5)
  - DEPRESSION [None]
  - NAUSEA [None]
  - FREQUENT BOWEL MOVEMENTS [None]
  - DEHYDRATION [None]
  - ABDOMINAL PAIN [None]
